FAERS Safety Report 8246672-5 (Version None)
Quarter: 2012Q1

REPORT INFORMATION
  Report Type: 
  Country: None (occurrence: None)
  Receive Date: 20120330
  Receipt Date: 20120320
  Transmission Date: 20120608
  Serious: Yes (Other)
  Sender: FDA-Public Use
  Company Number: US-JNJFOC-20120309953

PATIENT
  Sex: Female
  Weight: 59.42 kg

DRUGS (6)
  1. HYDROCODONE BITARTRATE [Suspect]
     Indication: BACK PAIN
     Route: 065
     Dates: start: 20120101
  2. REMICADE [Suspect]
     Indication: ANKYLOSING SPONDYLITIS
     Route: 042
     Dates: start: 20101001
  3. CITALOPRAM HYDROBROMIDE [Concomitant]
     Indication: ANTIDEPRESSANT THERAPY
     Route: 048
     Dates: start: 20100301
  4. NAPROXEN [Concomitant]
     Indication: ANTIINFLAMMATORY THERAPY
     Route: 048
     Dates: start: 20100501
  5. CIPROFLOXACIN HCL [Suspect]
     Indication: SERRATIA INFECTION
     Route: 065
     Dates: start: 20120101
  6. TRAMADOL HCL [Concomitant]
     Route: 065

REACTIONS (8)
  - BRONCHITIS [None]
  - SERRATIA INFECTION [None]
  - PHARYNGEAL OEDEMA [None]
  - PHARYNGITIS STREPTOCOCCAL [None]
  - DRUG HYPERSENSITIVITY [None]
  - PAIN [None]
  - HYPERSENSITIVITY [None]
  - PYREXIA [None]
